FAERS Safety Report 7356371-X (Version None)
Quarter: 2011Q1

REPORT INFORMATION
  Report Type: 
  Country: None (occurrence: None)
  Receive Date: 20110316
  Receipt Date: 20110310
  Transmission Date: 20110831
  Serious: Yes (Death, Life-Threatening)
  Sender: FDA-Public Use
  Company Number: GB-PFIZER INC-2010121992

PATIENT
  Age: 36 Year
  Sex: Male
  Weight: 110 kg

DRUGS (12)
  1. SOMATROPIN [Suspect]
     Indication: HYPOPITUITARISM
     Dosage: 0.5 MG, 1X/DAY
     Dates: start: 20080402
  2. THYROXINE [Concomitant]
     Indication: PRIMARY HYPOTHYROIDISM
  3. HYDROCORTISONE [Concomitant]
     Indication: BLOOD CORTICOTROPHIN DECREASED
     Dosage: 30 MG, 2X/DAY
     Dates: start: 20070718
  4. INDOMETHACIN [Concomitant]
     Indication: ANALGESIC THERAPY
     Dosage: 50 MG, UNK
     Dates: start: 20030203
  5. PARACETAMOL [Concomitant]
     Indication: ANALGESIC THERAPY
     Dosage: UNK
     Dates: start: 20030403
  6. THYROXINE [Concomitant]
     Indication: BLOOD THYROID STIMULATING HORMONE DECREASED
     Dosage: 50 UG,DAILY
     Dates: start: 20070718
  7. HYDROCORTISONE [Concomitant]
     Dosage: UNK
     Dates: start: 20070718
  8. TOPIRAMATE [Concomitant]
     Indication: CONVULSION
  9. CODEINE PHOSPHATE [Concomitant]
     Indication: ANALGESIC THERAPY
     Dosage: 60 MG, UNK
     Dates: start: 20030203
  10. TOPIRAMATE [Concomitant]
     Indication: EPILEPSY
     Dosage: 200 MG, 2X/DAY
     Dates: start: 20030203
  11. PIZOTIFEN [Concomitant]
     Indication: MIGRAINE
     Dosage: 0.5 MG, 3X/DAY
     Dates: start: 20030203
  12. SEVREDOL [Concomitant]
     Indication: ANALGESIC THERAPY
     Dosage: 50 MG, UNK
     Dates: start: 20030203

REACTIONS (1)
  - CARDIAC ARREST [None]
